FAERS Safety Report 11100319 (Version 1)
Quarter: 2015Q2

REPORT INFORMATION
  Report Type: Spontaneous
  Country: US (occurrence: None)
  Receive Date: 20150507
  Receipt Date: 20150507
  Transmission Date: 20150821
  Serious: Yes (Life-Threatening, Hospitalization, Disabling, Other)
  Sender: FDA-Public Use
  Company Number: None

PATIENT
  Age: 49 Year
  Sex: Female
  Weight: 72.58 kg

DRUGS (5)
  1. BYSTOLIC [Concomitant]
     Active Substance: NEBIVOLOL HYDROCHLORIDE
  2. AMLOD/BENAZP [Concomitant]
  3. EFFEXOR [Suspect]
     Active Substance: VENLAFAXINE HYDROCHLORIDE
     Indication: TENSION HEADACHE
     Route: 048
  4. LIPITOR [Concomitant]
     Active Substance: ATORVASTATIN CALCIUM
  5. DAILY VITAMINS (EXCEPT WHEN TOO NAUSEOUS) [Concomitant]

REACTIONS (20)
  - Hallucination [None]
  - Hypertensive crisis [None]
  - Nausea [None]
  - Withdrawal syndrome [None]
  - Insomnia [None]
  - Fatigue [None]
  - Discomfort [None]
  - Weight increased [None]
  - Sleep terror [None]
  - Feeling abnormal [None]
  - Vomiting [None]
  - Malaise [None]
  - Unevaluable event [None]
  - Drug dose omission [None]
  - Chills [None]
  - Paraesthesia [None]
  - No therapeutic response [None]
  - Headache [None]
  - Asthenia [None]
  - Drug dependence [None]
